FAERS Safety Report 17391648 (Version 1)
Quarter: 2020Q1

REPORT INFORMATION
  Report Type: Spontaneous
  Country: US (occurrence: US)
  Receive Date: 20200207
  Receipt Date: 20200207
  Transmission Date: 20200409
  Serious: No
  Sender: FDA-Public Use
  Company Number: US-TAKEDA-2020TUS006028

PATIENT
  Age: 57 Year
  Sex: Male

DRUGS (2)
  1. TERBINAFINE. [Concomitant]
     Active Substance: TERBINAFINE
     Dosage: UNK
     Route: 065
  2. NINLARO [Suspect]
     Active Substance: IXAZOMIB CITRATE
     Indication: PRODUCT USED FOR UNKNOWN INDICATION
     Dosage: 4 MILLIGRAM, 1/WEEK
     Route: 048
     Dates: start: 20190606

REACTIONS (2)
  - Depression [Unknown]
  - Product dose omission [Unknown]

NARRATIVE: CASE EVENT DATE: 20200110
